FAERS Safety Report 13439866 (Version 7)
Quarter: 2018Q1

REPORT INFORMATION
  Report Type: Report from Study
  Country: US (occurrence: US)
  Receive Date: 20170413
  Receipt Date: 20180320
  Transmission Date: 20180508
  Serious: Yes (Death, Other)
  Sender: FDA-Public Use
  Company Number: US-CELGENEUS-USA-20170400990

PATIENT
  Age: 87 Year
  Sex: Male
  Weight: 58.5 kg

DRUGS (2)
  1. VIDAZA [Suspect]
     Active Substance: AZACITIDINE
     Indication: MYELODYSPLASTIC SYNDROME
     Dosage: 75 MILLIGRAM/SQ. METER
     Route: 058
     Dates: start: 20160125, end: 20160623
  2. VIDAZA [Suspect]
     Active Substance: AZACITIDINE
     Dosage: 75 MILLIGRAM/SQ. METER
     Route: 058
     Dates: start: 2016, end: 20160711

REACTIONS (6)
  - Decreased appetite [Not Recovered/Not Resolved]
  - Neutropenia [Not Recovered/Not Resolved]
  - Nausea [Unknown]
  - Disseminated intravascular coagulation [Fatal]
  - Diarrhoea [Recovered/Resolved]
  - Constipation [Not Recovered/Not Resolved]

NARRATIVE: CASE EVENT DATE: 20160125
